FAERS Safety Report 7227621-5 (Version None)
Quarter: 2011Q1

REPORT INFORMATION
  Report Type: 
  Country: None (occurrence: None)
  Receive Date: 20110114
  Receipt Date: 20110111
  Transmission Date: 20110831
  Serious: No
  Sender: FDA-Public Use
  Company Number: US-PFIZER INC-2011007239

PATIENT
  Sex: Male
  Weight: 74.83 kg

DRUGS (1)
  1. EFFEXOR XR [Suspect]
     Indication: DEPRESSION
     Dosage: 75 MG, 1X/DAY
     Route: 048
     Dates: start: 20110103, end: 20110108

REACTIONS (4)
  - DIZZINESS [None]
  - NAUSEA [None]
  - MALAISE [None]
  - RASH [None]
